FAERS Safety Report 7106731-7 (Version None)
Quarter: 2010Q4

REPORT INFORMATION
  Report Type: 
  Country: None (occurrence: None)
  Receive Date: 20101116
  Receipt Date: 20101102
  Transmission Date: 20110411
  Serious: No
  Sender: FDA-Public Use
  Company Number: US-ABBOTT-10P-163-0665539-00

PATIENT
  Sex: Male
  Weight: 79.904 kg

DRUGS (11)
  1. SIMCOR [Suspect]
     Indication: BLOOD CHOLESTEROL INCREASED
     Dosage: 500/20MG
     Dates: start: 20100701, end: 20100801
  2. MS CONTIN [Concomitant]
     Indication: BACK PAIN
     Dosage: 60MG TWICE DAILY + 30MG TWICE DAILY
  3. ZALEPLON [Concomitant]
     Indication: INSOMNIA
  4. HYDROCHLOROTHIAZIDE [Concomitant]
     Indication: HYPERTENSION
  5. LYRICA [Concomitant]
     Indication: NEUROPATHY PERIPHERAL
  6. AMLODIPINE [Concomitant]
     Indication: HYPERTENSION
  7. FISH OIL [Concomitant]
     Indication: SUPPLEMENTATION THERAPY
  8. PRILOSEC [Concomitant]
     Indication: GASTRIC DISORDER
  9. PRILOSEC [Concomitant]
     Indication: DYSPEPSIA
  10. GINSENG [Concomitant]
     Indication: PHYTOTHERAPY
  11. CENTRUM SILVER [Concomitant]
     Indication: VITAMIN SUPPLEMENTATION

REACTIONS (8)
  - BURNING SENSATION [None]
  - CHILLS [None]
  - FLUSHING [None]
  - GENERALISED ERYTHEMA [None]
  - PAIN [None]
  - PRURITUS [None]
  - SKIN TIGHTNESS [None]
  - TREMOR [None]
